FAERS Safety Report 4525947-7 (Version None)
Quarter: 2004Q4

REPORT INFORMATION
  Report Type: 
  Country: None (occurrence: None)
  Receive Date: 20041124
  Receipt Date: 20040915
  Transmission Date: 20050328
  Serious: Yes (Other)
  Sender: FDA-Public Use
  Company Number: 2004055753

PATIENT
  Sex: Male

DRUGS (1)
  1. TIKOSYN [Suspect]
     Indication: HEART RATE
     Dosage: ORAL
     Route: 048

REACTIONS (2)
  - ARRHYTHMIA [None]
  - FOOT OPERATION [None]
